FAERS Safety Report 20355250 (Version 1)
Quarter: 2022Q1

REPORT INFORMATION
  Report Type: Spontaneous
  Country: US (occurrence: None)
  Receive Date: 20220119
  Receipt Date: 20220119
  Transmission Date: 20220423
  Serious: Yes (Life-Threatening)
  Sender: FDA-Public Use
  Company Number: None

PATIENT
  Age: 25 Year
  Sex: Female
  Weight: 71.1 kg

DRUGS (4)
  1. BAMLANIVIMAB [Suspect]
     Active Substance: BAMLANIVIMAB
     Indication: COVID-19
     Dosage: FREQUENCY : ONCE;?
     Route: 042
     Dates: start: 20220109, end: 20220109
  2. ETESEVIMAB [Suspect]
     Active Substance: ETESEVIMAB
     Indication: COVID-19
     Dosage: FREQUENCY : ONCE;?
     Route: 042
     Dates: start: 20220109, end: 20220109
  3. BAMLANIVIMAB [Concomitant]
     Active Substance: BAMLANIVIMAB
     Dates: start: 20220109, end: 20220109
  4. ETESEVIMAB [Concomitant]
     Active Substance: ETESEVIMAB
     Dates: start: 20220109, end: 20220109

REACTIONS (6)
  - Infusion related reaction [None]
  - Cough [None]
  - Dyspnoea [None]
  - Flushing [None]
  - Throat tightness [None]
  - Oxygen saturation decreased [None]

NARRATIVE: CASE EVENT DATE: 20220109
